FAERS Safety Report 16104121 (Version 1)
Quarter: 2019Q1

REPORT INFORMATION
  Report Type: Spontaneous
  Country: HR (occurrence: HR)
  Receive Date: 20190322
  Receipt Date: 20190322
  Transmission Date: 20190418
  Serious: Yes (Hospitalization)
  Sender: FDA-Public Use
  Company Number: HR-ACCORD-114056

PATIENT
  Age: 65 Year
  Sex: Male

DRUGS (13)
  1. FLUOROURACIL. [Suspect]
     Active Substance: FLUOROURACIL
     Indication: COLON CANCER METASTATIC
     Dosage: UNK UNK, CYCLICAL, ALSO RECEIVED AS SUSPECT.
     Route: 065
     Dates: start: 201508, end: 201512
  2. CONCOR [Concomitant]
     Active Substance: BISOPROLOL FUMARATE
     Indication: CORONARY ARTERY DISEASE
     Dosage: 2.5 MG, QD, ALSO RECEIVED AS 5 MG DOSE.
  3. CALIPRA [Concomitant]
     Dosage: 80 MG, QHS
  4. PIGREL [Concomitant]
     Indication: CORONARY ARTERY DISEASE
     Dosage: 75 MG, QD
  5. FOLINIC ACID [Suspect]
     Active Substance: LEUCOVORIN
     Indication: ADENOCARCINOMA OF COLON
     Dosage: ALSO RECEIVED FROM AUG-2015 TO DEC-2015.
  6. OXALIPLATIN. [Suspect]
     Active Substance: OXALIPLATIN
     Indication: COLON CANCER METASTATIC
     Dosage: UNK UNK, CYCLICAL, ALSO RECEIVED AS SUSPECT.
     Route: 065
     Dates: start: 201508, end: 201512
  7. CARDIOPIRIN [Concomitant]
     Active Substance: ASPIRIN
     Dosage: 100 MG, QD
  8. VECTIBIX [Suspect]
     Active Substance: PANITUMUMAB
     Indication: COLON CANCER METASTATIC
     Dosage: UNK UNK, CYCLICAL, ALSO RECEIVED AS SUSPECT.
     Route: 065
     Dates: start: 201508, end: 201512
  9. CONTROLOC [Concomitant]
     Active Substance: PANTOPRAZOLE SODIUM
     Dosage: 40 MG, QD
  10. CAPECITABINE. [Concomitant]
     Active Substance: CAPECITABINE
     Indication: COLON CANCER METASTATIC
     Dosage: UNK UNK, CYCLICAL, ALSO RECEIVED AS CONCOMITANT.
     Dates: start: 201602
  11. CAPECITABINE. [Concomitant]
     Active Substance: CAPECITABINE
     Indication: ADENOCARCINOMA OF COLON
  12. BISOPROLOL FUMARATE. [Concomitant]
     Active Substance: BISOPROLOL FUMARATE
     Indication: CORONARY ARTERY DISEASE
     Dosage: 5 MG, QD
  13. PIRAMIL [Concomitant]
     Active Substance: RAMIPRIL
     Dosage: 1.25 MG, QD

REACTIONS (1)
  - Pyrexia [Unknown]

NARRATIVE: CASE EVENT DATE: 201601
